FAERS Safety Report 17984279 (Version 2)
Quarter: 2020Q3

REPORT INFORMATION
  Report Type: Report from Study
  Country: CA (occurrence: CA)
  Receive Date: 20200706
  Receipt Date: 20200721
  Transmission Date: 20201103
  Serious: Yes (Hospitalization, Other)
  Sender: FDA-Public Use
  Company Number: CA-JNJFOC-20200316722

PATIENT
  Age: 71 Year
  Sex: Female
  Weight: 64 kg

DRUGS (1)
  1. REMICADE [Suspect]
     Active Substance: INFLIXIMAB
     Indication: RHEUMATOID ARTHRITIS
     Dosage: RECENT DOSE ON 28/JAN/2020 AND REMICADE ON HOLD SINCE THEREAFTER
     Route: 042
     Dates: end: 20200706

REACTIONS (7)
  - Bile duct cancer [Not Recovered/Not Resolved]
  - Weight decreased [Unknown]
  - Pneumonia [Recovered/Resolved]
  - Haematuria [Not Recovered/Not Resolved]
  - Breast cancer [Not Recovered/Not Resolved]
  - Phlebitis [Unknown]
  - Dysuria [Unknown]

NARRATIVE: CASE EVENT DATE: 2020
